FAERS Safety Report 12879878 (Version 1)
Quarter: 2016Q4

REPORT INFORMATION
  Report Type: Spontaneous
  Country: US (occurrence: US)
  Receive Date: 20161025
  Receipt Date: 20161025
  Transmission Date: 20170207
  Serious: No
  Sender: FDA-Public Use
  Company Number: US-PFIZER INC-2016487564

PATIENT
  Age: 57 Year
  Sex: Female
  Weight: 74.84 kg

DRUGS (6)
  1. PRISTIQ EXTENDED-RELEASE [Suspect]
     Active Substance: DESVENLAFAXINE SUCCINATE
     Indication: ANXIETY
     Dosage: 50 MG, 1X/DAY (IN MORNING)
     Route: 048
     Dates: start: 201504
  2. CLONAZEPAM. [Concomitant]
     Active Substance: CLONAZEPAM
     Indication: ANXIETY
  3. CLONAZEPAM. [Concomitant]
     Active Substance: CLONAZEPAM
     Indication: PANIC ATTACK
  4. CLONAZEPAM. [Concomitant]
     Active Substance: CLONAZEPAM
     Indication: STRESS
     Dosage: 0.5 MG, AS NEEDED,(FOUR TIMES DAILY)
     Route: 048
     Dates: start: 2011
  5. CYCLOBENZAPRINE [Concomitant]
     Active Substance: CYCLOBENZAPRINE
     Indication: MUSCLE SPASMS
     Dosage: 10 MG, 3X/DAY
     Route: 048
     Dates: start: 2011
  6. TEGRETOL [Concomitant]
     Active Substance: CARBAMAZEPINE
     Indication: LOGORRHOEA
     Dosage: 200 MG, 2X/DAY
     Route: 048
     Dates: start: 201402

REACTIONS (5)
  - Drug ineffective [Recovered/Resolved]
  - Weight increased [Recovered/Resolved]
  - Feeling abnormal [Recovered/Resolved]
  - Speech disorder [Recovered/Resolved]
  - Disease recurrence [Recovered/Resolved]

NARRATIVE: CASE EVENT DATE: 201607
